FAERS Safety Report 6316903-7 (Version None)
Quarter: 2009Q3

REPORT INFORMATION
  Report Type: 
  Country: None (occurrence: None)
  Receive Date: 20090820
  Receipt Date: 20090806
  Transmission Date: 20100115
  Serious: Yes (Other)
  Sender: FDA-Public Use
  Company Number: DK-MYLANLABS-2009S1014020

PATIENT
  Sex: Female

DRUGS (3)
  1. ALENDRONAT [Suspect]
     Indication: OSTEOPOROSIS
     Dosage: 70 MILLIGRAM(S)
     Route: 048
     Dates: start: 20090128
  2. MANDOLGIN [Concomitant]
     Indication: PAIN
     Dosage: 50 MILLIGRAM(S)
     Route: 048
     Dates: start: 20090127
  3. ACETAMINOPHEN [Concomitant]
     Indication: PAIN
     Dosage: 500 MILLIGRAM(S)
     Route: 048
     Dates: start: 20070323

REACTIONS (2)
  - AGGRESSION [None]
  - ANGER [None]
